FAERS Safety Report 9195850 (Version 1)
Quarter: 2013Q1

REPORT INFORMATION
  Report Type: Spontaneous
  Country: US (occurrence: None)
  Receive Date: 20130312
  Receipt Date: 20130312
  Transmission Date: 20140127
  Serious: No
  Sender: FDA-Public Use
  Company Number: 2013034953

PATIENT
  Sex: Female

DRUGS (21)
  1. HIZENTRA (IMMUNOGLOBULIN HUMAN NORMAL) [Suspect]
     Indication: IMMUNODEFICIENCY COMMON VARIABLE
     Dosage: 10G 1X/WEEK, 4GM IN 2 TO 3 SITES OVER 1 TO 2 HORS SUBCUTANEOUS
     Route: 058
  2. ACETAMINOPHEN (PARACETAMOL) [Concomitant]
  3. DIPHENHYDRAMINE (DIPHENHYDRAMINE) [Concomitant]
  4. EPIPEN (EPINEPHRINE) [Concomitant]
  5. LMX (LIDOCAINE) [Concomitant]
  6. LEVAQUIN (LEVOFLOXACIN) [Concomitant]
  7. NEUROTIN (CITICOLINE SODIUM) [Concomitant]
  8. NOVOLIN R (INSULIN HUMAN) [Concomitant]
  9. NOVOLIN N (INSULIN HUMAN INJECTION, ISOPHANE) [Concomitant]
  10. ONE DAILY WOMENS VITAMIN (MULTIVITAMIN) [Concomitant]
  11. CELEXA (CITALOPRAM HYDROBROMIDE) [Concomitant]
  12. OXYGEN (OXYGEN) [Concomitant]
  13. SINGULAIR [Concomitant]
  14. XANAX (ALPRAZOLAM) [Concomitant]
  15. POTASSIUM CL ER (POTASSIUM CHLORIDE) [Concomitant]
  16. OXYCODONE APAP (OXYCODONE.APAP) [Concomitant]
  17. GLYCOLAX (MACROGOL) [Concomitant]
  18. PREDNISONE DOSEPAK (PREDNISONE) [Concomitant]
  19. VERAPAMIL (VERAPAMIL) [Concomitant]
  20. THEOPHYLLINE (THEOPHYLLINE) [Concomitant]
  21. ASPIRIN (ACETYLSALICYLIC ACID) [Concomitant]

REACTIONS (1)
  - Cardiac failure congestive [None]
